FAERS Safety Report 7705783-0 (Version None)
Quarter: 2011Q3

REPORT INFORMATION
  Report Type: 
  Country: None (occurrence: None)
  Receive Date: 20110824
  Receipt Date: 20110824
  Transmission Date: 20111222
  Serious: Yes (Other)
  Sender: FDA-Public Use
  Company Number: None

PATIENT
  Age: 30 Year
  Sex: Male
  Weight: 69.853 kg

DRUGS (1)
  1. LEVAQUIN [Suspect]
     Indication: SINUSITIS
     Dates: start: 20110803, end: 20110810

REACTIONS (10)
  - FEELING ABNORMAL [None]
  - MEMORY IMPAIRMENT [None]
  - GAIT DISTURBANCE [None]
  - MIGRAINE [None]
  - PAIN IN EXTREMITY [None]
  - ABNORMAL DREAMS [None]
  - DISSOCIATION [None]
  - THINKING ABNORMAL [None]
  - DYSPHEMIA [None]
  - DRUG INEFFECTIVE [None]
